FAERS Safety Report 8161892-6 (Version None)
Quarter: 2012Q1

REPORT INFORMATION
  Report Type: 
  Country: None (occurrence: None)
  Receive Date: 20120221
  Receipt Date: 20120206
  Transmission Date: 20120608
  Serious: Yes (Hospitalization)
  Sender: FDA-Public Use
  Company Number: B0781803A

PATIENT
  Age: 19 Year
  Sex: Female

DRUGS (1)
  1. DIGOXIN [Suspect]
     Indication: ABORTION INDUCED
     Dates: start: 20021222

REACTIONS (3)
  - MATERNAL EXPOSURE DURING PREGNANCY [None]
  - INFECTION [None]
  - BODY TEMPERATURE INCREASED [None]
